FAERS Safety Report 7851022-X (Version None)
Quarter: 2011Q4

REPORT INFORMATION
  Report Type: 
  Country: None (occurrence: None)
  Receive Date: 20111024
  Receipt Date: 20111013
  Transmission Date: 20120403
  Serious: Yes (Hospitalization, Congenital Anomaly)
  Sender: FDA-Public Use
  Company Number: US-ZYDUS-000188

PATIENT
  Sex: Male
  Weight: 2 kg

DRUGS (5)
  1. MYCOPHENOLATE MOFETIL [Suspect]
     Dosage: INTRA-UTERINE
     Route: 015
  2. FERROUS SULFATE TAB [Concomitant]
  3. PREDNISONE [Concomitant]
  4. OMEPRAZOLE [Concomitant]
  5. FLUCONAZOLE [Concomitant]

REACTIONS (36)
  - ANOMALOUS PULMONARY VENOUS CONNECTION [None]
  - CAESAREAN SECTION [None]
  - JOINT ANKYLOSIS [None]
  - LIMB DEFORMITY [None]
  - VASCULAR ANOMALY [None]
  - SINGLE UMBILICAL ARTERY [None]
  - DELAYED FONTANELLE CLOSURE [None]
  - MICROPHTHALMOS [None]
  - FAILURE TO THRIVE [None]
  - FOETAL CARDIAC DISORDER [None]
  - MICROGNATHIA [None]
  - CONGENITAL DEFORMITY OF CLAVICLE [None]
  - DOUBLE OUTLET RIGHT VENTRICLE [None]
  - CLEFT PALATE [None]
  - ACROCHORDON [None]
  - CRYPTORCHISM [None]
  - CONGENITAL PULMONARY VALVE DISORDER [None]
  - CONGENITAL ARTERIAL MALFORMATION [None]
  - MICROTIA [None]
  - IRIS COLOBOMA [None]
  - VENTRICULAR SEPTAL DEFECT [None]
  - ATRIAL SEPTAL DEFECT [None]
  - PULMONARY ARTERY STENOSIS CONGENITAL [None]
  - CONGENITAL VISUAL ACUITY REDUCED [None]
  - DYSMORPHISM [None]
  - SHOULDER DEFORMITY [None]
  - MICROSOMIA [None]
  - RESPIRATORY DISTRESS [None]
  - DEVELOPMENTAL DELAY [None]
  - MATERNAL DRUGS AFFECTING FOETUS [None]
  - MITRAL VALVE ATRESIA [None]
  - ANOMALY OF EXTERNAL EAR CONGENITAL [None]
  - SKELETON DYSPLASIA [None]
  - PTERYGIUM COLLI [None]
  - SMALL FOR DATES BABY [None]
  - FOETAL GROWTH RESTRICTION [None]
